FAERS Safety Report 14540863 (Version 1)
Quarter: 2018Q1

REPORT INFORMATION
  Report Type: Spontaneous
  Country: GB (occurrence: GB)
  Receive Date: 20180216
  Receipt Date: 20180216
  Transmission Date: 20180509
  Serious: Yes (Hospitalization, Other)
  Sender: FDA-Public Use
  Company Number: GB-OTSUKA-DJ20072908

PATIENT
  Age: 50 Year
  Sex: Male
  Weight: 81 kg

DRUGS (2)
  1. FLUPHENAZINE DECANOATE. [Concomitant]
     Active Substance: FLUPHENAZINE DECANOATE
     Indication: PRODUCT USED FOR UNKNOWN INDICATION
     Dosage: 25 MG, UNK
     Route: 030
     Dates: end: 20071005
  2. ABILIFY [Suspect]
     Active Substance: ARIPIPRAZOLE
     Indication: SCHIZOPHRENIA
     Route: 048
     Dates: start: 20061103, end: 20070118

REACTIONS (1)
  - Pericarditis constrictive [Not Recovered/Not Resolved]

NARRATIVE: CASE EVENT DATE: 20070118
